FAERS Safety Report 9686577 (Version 1)
Quarter: 2013Q4

REPORT INFORMATION
  Report Type: Spontaneous
  Country: US (occurrence: US)
  Receive Date: 20131113
  Receipt Date: 20131113
  Transmission Date: 20140711
  Serious: Yes (Other)
  Sender: FDA-Public Use
  Company Number: US-GLAXOSMITHKLINE-A1044155A

PATIENT
  Age: 85 Year
  Sex: Male
  Weight: 67.3 kg

DRUGS (4)
  1. ADVAIR [Suspect]
     Indication: CHRONIC OBSTRUCTIVE PULMONARY DISEASE
     Dosage: 1PUFF TWICE PER DAY
     Route: 055
     Dates: start: 20130926, end: 20131001
  2. PREDNISONE [Concomitant]
  3. MULTIVITAMIN [Concomitant]
  4. PLAQUENIL [Concomitant]

REACTIONS (4)
  - Pulmonary fibrosis [Recovering/Resolving]
  - Dyspnoea [Unknown]
  - Dizziness [Unknown]
  - Dyspnoea exertional [Unknown]
